FAERS Safety Report 12475252 (Version 2)
Quarter: 2016Q3

REPORT INFORMATION
  Report Type: Other
  Country: GB (occurrence: GB)
  Receive Date: 20160617
  Receipt Date: 20160719
  Transmission Date: 20161109
  Serious: Yes (Other)
  Sender: FDA-Public Use
  Company Number: GB-GLENMARK PHARMACEUTICALS INC, USA.-2016GMK023262

PATIENT

DRUGS (3)
  1. MOMETASONE FUROATE. [Suspect]
     Active Substance: MOMETASONE FUROATE
     Indication: RHINITIS ALLERGIC
     Dosage: 2 DF, BID
     Dates: start: 20160527
  2. MOMETASONE FUROATE. [Interacting]
     Active Substance: MOMETASONE FUROATE
     Indication: SEASONAL ALLERGY
  3. IBUPROFEN. [Interacting]
     Active Substance: IBUPROFEN
     Indication: VULVOVAGINAL PAIN
     Dosage: UNK, PRN
     Route: 065
     Dates: start: 20160527

REACTIONS (3)
  - Drug interaction [Unknown]
  - Product use issue [Unknown]
  - Insomnia [Recovered/Resolved]

NARRATIVE: CASE EVENT DATE: 20160527
